FAERS Safety Report 6119784-X (Version None)
Quarter: 2009Q1

REPORT INFORMATION
  Report Type: 
  Country: None (occurrence: None)
  Receive Date: 20090316
  Receipt Date: 20090304
  Transmission Date: 20090719
  Serious: Yes (Hospitalization)
  Sender: FDA-Public Use
  Company Number: CA-PFIZER INC-2009179282

PATIENT

DRUGS (22)
  1. PREDNISONE [Suspect]
     Indication: PROSTATE CANCER
     Dosage: 5 MG, 2X/DAY
     Route: 048
     Dates: start: 20090205
  2. PREDNISONE [Suspect]
     Indication: PAIN
     Dosage: 10 MG, 1X/DAY
     Dates: start: 20090123
  3. BLINDED *PLACEBO [Suspect]
     Indication: PROSTATE CANCER
     Dosage: 37.5 MG, 1X/DAY
     Route: 048
     Dates: start: 20090205
  4. BLINDED SUNITINIB MALATE [Suspect]
     Indication: PROSTATE CANCER
     Dosage: 37.5 MG, 1X/DAY
     Route: 048
     Dates: start: 20090205
  5. GOSERELIN [Concomitant]
     Indication: PROSTATE CANCER
     Dosage: 10.8 MG, EVERY 3 MONTHS
     Route: 058
     Dates: start: 20041001
  6. ZOLEDRONIC ACID [Concomitant]
     Indication: METASTASES TO BONE
     Dosage: 4MG/5ML, EVERY 4 WEEKS
     Route: 042
     Dates: start: 20080718
  7. PREGABALIN [Concomitant]
     Indication: BONE PAIN
     Dosage: 225 MG, 1X/DAY
     Route: 048
     Dates: start: 20081111
  8. HYDROMORPHONE [Concomitant]
     Indication: PAIN
     Dosage: 2 MG, AS NEEDED
     Route: 048
     Dates: start: 20081111
  9. EPOETIN ALFA [Concomitant]
     Indication: ANAEMIA
     Dosage: 10000, WEEKLY
     Route: 030
     Dates: start: 20080420
  10. NAPROXEN [Concomitant]
     Indication: PAIN
     Dosage: 1 G, 1X/DAY
     Route: 048
     Dates: start: 20081125
  11. DOCUSATE SODIUM [Concomitant]
     Indication: CONSTIPATION
     Dosage: 200 MG, 1X/DAY
     Route: 048
     Dates: start: 20081126
  12. ASCORBIC ACID [Concomitant]
     Indication: MEDICAL DIET
     Dosage: 1 G, 1X/DAY
     Route: 048
     Dates: start: 20000101
  13. GARLIC [Concomitant]
     Indication: CARDIOVASCULAR EVENT PROPHYLAXIS
     Dosage: UNK
     Route: 048
     Dates: start: 19990101, end: 20090303
  14. PROCHLORPERAZINE [Concomitant]
     Indication: NAUSEA
     Dosage: UNK
     Route: 048
     Dates: start: 20081217
  15. CALCIUM [Concomitant]
     Indication: MEDICAL DIET
     Dosage: UNK
     Route: 048
     Dates: start: 20080101
  16. VITAMIN D [Concomitant]
     Indication: MEDICAL DIET
     Dosage: UNK
     Route: 048
     Dates: start: 20080101
  17. MAGNESIUM [Concomitant]
     Indication: MEDICAL DIET
     Dosage: UNK
     Route: 048
     Dates: start: 20080101
  18. FENTANYL [Concomitant]
     Indication: PAIN
     Dosage: 75 MG, 3X/DAY
     Dates: start: 20081218
  19. LACTULOSE [Concomitant]
     Indication: CONSTIPATION
     Dosage: 30 ML, AS NEEDED
     Route: 048
     Dates: start: 20081202
  20. GLYCERIN [Concomitant]
     Indication: CONSTIPATION
     Dosage: UNK
     Dates: start: 20081202
  21. PANTOPRAZOLE [Concomitant]
     Indication: DYSPEPSIA
     Dosage: 40 MG, 1X/DAY
     Route: 048
     Dates: start: 20081125
  22. SENNA [Concomitant]
     Indication: CONSTIPATION
     Dosage: UNK
     Route: 048
     Dates: start: 20081204

REACTIONS (1)
  - GENERAL PHYSICAL HEALTH DETERIORATION [None]
